FAERS Safety Report 18783158 (Version 2)
Quarter: 2021Q1

REPORT INFORMATION
  Report Type: Spontaneous
  Country: US (occurrence: US)
  Receive Date: 20210125
  Receipt Date: 20210224
  Transmission Date: 20210419
  Serious: Yes (Other)
  Sender: FDA-Public Use
  Company Number: US-BAYER-2021-036281

PATIENT
  Age: 22 Year
  Sex: Female
  Weight: 49.89 kg

DRUGS (1)
  1. MIRENA [Suspect]
     Active Substance: LEVONORGESTREL
     Indication: CONTRACEPTION
     Dosage: 20 ?G PER DAY CONTINUOUSLY
     Route: 015
     Dates: start: 201911, end: 20210201

REACTIONS (4)
  - Device dislocation [Recovered/Resolved]
  - Genital haemorrhage [None]
  - Embedded device [Recovered/Resolved]
  - Benign ovarian tumour [None]

NARRATIVE: CASE EVENT DATE: 201911
